FAERS Safety Report 6713109-4 (Version None)
Quarter: 2010Q2

REPORT INFORMATION
  Report Type: 
  Country: None (occurrence: None)
  Receive Date: 20100503
  Receipt Date: 20100217
  Transmission Date: 20101027
  Serious: Yes (Other)
  Sender: FDA-Public Use
  Company Number: ALL1-2009-04173

PATIENT
  Age: 4 Year
  Sex: Male
  Weight: 24 kg

DRUGS (4)
  1. INTUNIV [Suspect]
     Indication: ATTENTION DEFICIT/HYPERACTIVITY DISORDER
     Dosage: 1 MG, 1X/DAY:QD, ORAL; 2 MG, 1X/DAY:QD, ORAL
     Route: 048
     Dates: start: 20091220, end: 20091226
  2. INTUNIV [Suspect]
     Indication: ATTENTION DEFICIT/HYPERACTIVITY DISORDER
     Dosage: 1 MG, 1X/DAY:QD, ORAL; 2 MG, 1X/DAY:QD, ORAL
     Route: 048
     Dates: start: 20091227, end: 20091227
  3. SINGULAIR /01362601/ (MONTELUKAST) [Concomitant]
  4. CLARITIN /00917501/ (LORATADINE) [Concomitant]

REACTIONS (4)
  - HEART RATE DECREASED [None]
  - LETHARGY [None]
  - OFF LABEL USE [None]
  - SOMNOLENCE [None]
